FAERS Safety Report 7958263-1 (Version None)
Quarter: 2011Q4

REPORT INFORMATION
  Report Type: 
  Country: None (occurrence: None)
  Receive Date: 20111205
  Receipt Date: 20111201
  Transmission Date: 20120403
  Serious: Yes (Life-Threatening, Hospitalization, Other)
  Sender: FDA-Public Use
  Company Number: FR-PFIZER INC-2011293219

PATIENT
  Age: 71 Year
  Sex: Female

DRUGS (7)
  1. LYRICA [Suspect]
     Dosage: UNK
     Route: 048
     Dates: start: 20110701
  2. CERTICAN [Suspect]
     Dosage: 3 MG/DAY
     Route: 048
     Dates: start: 20110506
  3. PANTOPRAZOLE [Suspect]
     Dosage: UNK
     Route: 048
  4. MYCOPHENOLATE MOFETIL (CELLCEPT) [Suspect]
     Dosage: 1.5 G/DAY
     Route: 048
     Dates: start: 20070101
  5. CERTICAN [Suspect]
     Dosage: 3 MG/DAY
     Route: 048
  6. ARANESP [Suspect]
     Dosage: UNK
     Route: 048
     Dates: start: 20090701
  7. ASPIRIN [Suspect]
     Dosage: UNK
     Route: 048
     Dates: start: 20070101

REACTIONS (1)
  - ORGANISING PNEUMONIA [None]
